FAERS Safety Report 23118058 (Version 1)
Quarter: 2023Q4

REPORT INFORMATION
  Report Type: Report from Study
  Country: US (occurrence: US)
  Receive Date: 20231027
  Receipt Date: 20231027
  Transmission Date: 20240110
  Serious: Yes (Death, Hospitalization)
  Sender: FDA-Public Use
  Company Number: US-Eisai-EC-2023-151612

PATIENT
  Age: 75 Year
  Sex: Female

DRUGS (2)
  1. LENVIMA [Suspect]
     Active Substance: LENVATINIB
     Indication: Anaplastic thyroid cancer
     Dosage: MD PLACED THERAPY ON HOLD SOMETIME BETWEEN SEP TO OCT 2023
     Route: 048
     Dates: start: 20230924, end: 20231010
  2. KEYTRUDA [Suspect]
     Active Substance: PEMBROLIZUMAB
     Indication: Anaplastic thyroid cancer
     Dosage: UNKNOWN DOSE

REACTIONS (7)
  - Death [Fatal]
  - Hypothyroidism [Unknown]
  - Hyperkalaemia [Unknown]
  - Pneumonia [Unknown]
  - Cardiac dysfunction [Unknown]
  - Muscular weakness [Unknown]
  - Cough [Unknown]

NARRATIVE: CASE EVENT DATE: 20230101
